FAERS Safety Report 4548542-2 (Version None)
Quarter: 2005Q1

REPORT INFORMATION
  Report Type: 
  Country: None (occurrence: None)
  Receive Date: 20050106
  Receipt Date: 20041222
  Transmission Date: 20050727
  Serious: Yes (Other)
  Sender: FDA-Public Use
  Company Number: 200416248BCC

PATIENT
  Age: 29 Year
  Sex: Female
  Weight: 91.173 kg

DRUGS (3)
  1. ALEVE [Suspect]
     Indication: MUSCLE SPASMS
     Dosage: SEE IMAGE
     Route: 048
  2. ALEVE [Suspect]
     Indication: MUSCLE SPASMS
     Dosage: SEE IMAGE
     Route: 048
     Dates: start: 20041221
  3. ALBUTEROL [Concomitant]

REACTIONS (3)
  - CHEST PAIN [None]
  - DIZZINESS [None]
  - HEART RATE INCREASED [None]
